FAERS Safety Report 9184087 (Version 2)
Quarter: 2013Q2

REPORT INFORMATION
  Report Type: Spontaneous
  Country: IE (occurrence: IE)
  Receive Date: 20130322
  Receipt Date: 20130517
  Transmission Date: 20140414
  Serious: Yes (Other)
  Sender: FDA-Public Use
  Company Number: IE-BAYER-2013-036333

PATIENT
  Age: 48 Year
  Sex: Female

DRUGS (4)
  1. MIRENA [Suspect]
     Dosage: 20 MCG/24HR, CONT
  2. CYMBALTA [Suspect]
     Indication: ANXIETY
     Dosage: DAILY DOSE 60 MG
     Route: 048
     Dates: start: 20120612, end: 20130122
  3. CYMBALTA [Suspect]
     Indication: DEPRESSION
  4. ZOMIG [Concomitant]
     Indication: MIGRAINE
     Dosage: 1 DF, PRN

REACTIONS (3)
  - Hypertension [Recovered/Resolved]
  - Menorrhagia [Recovered/Resolved]
  - Impaired healing [Recovered/Resolved]
